FAERS Safety Report 5475502-X (Version None)
Quarter: 2007Q4

REPORT INFORMATION
  Report Type: 
  Country: None (occurrence: None)
  Receive Date: 20071003
  Receipt Date: 20070919
  Transmission Date: 20080405
  Serious: Yes (Other)
  Sender: FDA-Public Use
  Company Number: JP-JNJFOC-20070802395

PATIENT
  Sex: Female
  Weight: 51 kg

DRUGS (11)
  1. REMICADE [Suspect]
     Route: 042
  2. REMICADE [Suspect]
     Route: 042
  3. REMICADE [Suspect]
     Dosage: 2 INFUSIONS ON UNKNOWN DATES
     Route: 042
  4. REMICADE [Suspect]
     Indication: RHEUMATOID ARTHRITIS
     Route: 042
  5. RHEUMATREX [Suspect]
     Indication: RHEUMATOID ARTHRITIS
     Route: 048
  6. MEDROL [Suspect]
     Indication: RHEUMATOID ARTHRITIS
     Route: 048
  7. SPIROPENT [Suspect]
     Indication: BRONCHIECTASIS
     Route: 048
  8. ZESULAN [Suspect]
     Indication: BRONCHIECTASIS
     Route: 048
  9. LIPITOR [Suspect]
     Indication: HYPERLIPIDAEMIA
     Route: 048
  10. ADALAT [Suspect]
     Indication: HYPERTENSION
     Route: 048
  11. LOXONIN [Suspect]
     Indication: RHEUMATOID ARTHRITIS
     Route: 048

REACTIONS (2)
  - NEUROPATHY PERIPHERAL [None]
  - VASCULITIS [None]
